FAERS Safety Report 6106227-5 (Version None)
Quarter: 2009Q1

REPORT INFORMATION
  Report Type: 
  Country: None (occurrence: None)
  Receive Date: 20090306
  Receipt Date: 20090226
  Transmission Date: 20090719
  Serious: Yes (Life-Threatening)
  Sender: FDA-Public Use
  Company Number: FR-TEVA-186324ISR

PATIENT
  Age: 54 Year
  Sex: Male

DRUGS (1)
  1. COPAXONE [Suspect]
     Indication: MULTIPLE SCLEROSIS
     Dates: start: 20070101

REACTIONS (3)
  - CARDIOGENIC SHOCK [None]
  - GENERAL PHYSICAL HEALTH DETERIORATION [None]
  - NEOPLASM MALIGNANT [None]
